FAERS Safety Report 9477198 (Version 2)
Quarter: 2013Q3

REPORT INFORMATION
  Report Type: Report from Study
  Country: NL (occurrence: NL)
  Receive Date: 20130826
  Receipt Date: 20130826
  Transmission Date: 20140515
  Serious: Yes (Death)
  Sender: FDA-Public Use
  Company Number: NL-ABBOTT-12P-114-0908972-00

PATIENT
  Sex: Male
  Weight: 81.5 kg

DRUGS (9)
  1. LUCRIN DEPOT 30 MG [Suspect]
     Indication: PROSTATE CANCER
     Route: 058
     Dates: start: 20110815
  2. ACETYLSALICYLIC ACID [Concomitant]
     Indication: ANTICOAGULANT THERAPY
     Dosage: 1/1 TIME DAILY, DISPERSABLE TABLET
     Route: 048
  3. ISOSORBIDEMONONITRAAT [Concomitant]
     Indication: ANGINA PECTORIS
     Dosage: TABLET MGA
     Route: 048
  4. LOSARTAN [Concomitant]
     Indication: HYPERTENSION
     Dosage: TABLET FO
     Route: 048
  5. METOPROLOL [Concomitant]
     Indication: HYPERTENSION
     Dosage: TABLET MG (SUCCINAAT)
     Route: 048
  6. ROSUVASTATINE [Concomitant]
     Indication: HYPERCHOLESTEROLAEMIA
     Dosage: TABLET FO
     Route: 048
  7. CLOPIDOGREL [Concomitant]
     Indication: ISCHAEMIC HEART DISEASE PROPHYLAXIS
     Dosage: TABLET (BESILAAT)
     Route: 048
  8. PANTOPRAZOL [Concomitant]
     Indication: PROPHYLAXIS
     Dosage: 1/1 TIME DAILY, TABLET MSR
     Route: 048
  9. PANTOPRAZOL [Concomitant]
     Indication: GASTRIC DISORDER

REACTIONS (6)
  - Death [Fatal]
  - Weight increased [Not Recovered/Not Resolved]
  - Injection site induration [Not Recovered/Not Resolved]
  - Hot flush [Not Recovered/Not Resolved]
  - Mood swings [Not Recovered/Not Resolved]
  - Hyperhidrosis [Not Recovered/Not Resolved]
